FAERS Safety Report 5489253-9 (Version None)
Quarter: 2007Q4

REPORT INFORMATION
  Report Type: 
  Country: None (occurrence: None)
  Receive Date: 20071016
  Receipt Date: 20070930
  Transmission Date: 20080405
  Serious: Yes (Other)
  Sender: FDA-Public Use
  Company Number: 8020356

PATIENT
  Age: 36 Year
  Sex: Female

DRUGS (5)
  1. KEPPRA [Suspect]
     Indication: COMPLEX PARTIAL SEIZURES
     Dosage: 3000 MG /D PO
     Route: 048
     Dates: start: 20030301, end: 20060929
  2. KEPPRA [Suspect]
     Indication: COMPLEX PARTIAL SEIZURES
     Dosage: 4000 MG /D PO
     Route: 048
     Dates: start: 20060929, end: 20061127
  3. KEPPRA [Suspect]
     Indication: COMPLEX PARTIAL SEIZURES
     Dosage: 4500 MG /D PO
     Route: 048
     Dates: start: 20061127
  4. LAMICTAL [Concomitant]
  5. MULTI-VITAMIN [Concomitant]

REACTIONS (5)
  - ABORTION SPONTANEOUS [None]
  - COMPLEX PARTIAL SEIZURES [None]
  - CONGENITAL CHOROID PLEXUS CYST [None]
  - DRUG EXPOSURE DURING PREGNANCY [None]
  - PREGNANCY [None]
